FAERS Safety Report 24176001 (Version 2)
Quarter: 2024Q3

REPORT INFORMATION
  Report Type: Report from Study
  Country: US (occurrence: US)
  Receive Date: 20240806
  Receipt Date: 20240826
  Transmission Date: 20241016
  Serious: Yes (Other)
  Sender: SUNOVION
  Company Number: US-SUMITOMO PHARMA SWITZERLAND GMBH-2024MYSCI0701069

PATIENT

DRUGS (2)
  1. ORGOVYX [Suspect]
     Active Substance: RELUGOLIX
     Indication: Prostate cancer
     Dosage: 360 MG, SINGLE
     Route: 048
     Dates: start: 20240521, end: 20240521
  2. ORGOVYX [Suspect]
     Active Substance: RELUGOLIX
     Dosage: 120 MG, QD
     Route: 048
     Dates: start: 20240522

REACTIONS (3)
  - Urinary retention [Unknown]
  - Cystitis [Unknown]
  - Dysuria [Unknown]
